FAERS Safety Report 15704369 (Version 4)
Quarter: 2020Q1

REPORT INFORMATION
  Report Type: Spontaneous
  Country: US (occurrence: US)
  Receive Date: 20181210
  Receipt Date: 20200322
  Transmission Date: 20200409
  Serious: Yes (Death, Other)
  Sender: FDA-Public Use
  Company Number: PHEH2018US051815

PATIENT
  Age: 85 Year
  Sex: Female

DRUGS (1)
  1. TASIGNA [Suspect]
     Active Substance: NILOTINIB
     Indication: CHRONIC MYELOID LEUKAEMIA
     Dosage: 1 DF, QD
     Route: 048
     Dates: start: 2012

REACTIONS (24)
  - Pericardial effusion [Unknown]
  - Emotional distress [Unknown]
  - Chest pain [Unknown]
  - Anaemia [Unknown]
  - Diarrhoea [Unknown]
  - Dyspnoea [Unknown]
  - Respiratory distress [Unknown]
  - Myocardial infarction [Unknown]
  - Neck pain [Unknown]
  - Cerebrovascular accident [Unknown]
  - Facet joint syndrome [Unknown]
  - Cellulitis [Unknown]
  - Muscle strain [Unknown]
  - Trigeminal neuralgia [Unknown]
  - Intervertebral disc degeneration [Unknown]
  - Anxiety [Unknown]
  - Type 2 diabetes mellitus [Unknown]
  - Colitis [Unknown]
  - Musculoskeletal pain [Unknown]
  - Pain [Unknown]
  - Death [Fatal]
  - Chondrocalcinosis pyrophosphate [Unknown]
  - Injury [Unknown]
  - Pain in extremity [Unknown]

NARRATIVE: CASE EVENT DATE: 20160727
